FAERS Safety Report 8842512 (Version 2)
Quarter: 2015Q1

REPORT INFORMATION
  Report Type: Report from Study
  Country: US (occurrence: US)
  Receive Date: 20121016
  Receipt Date: 20150202
  Transmission Date: 20150721
  Serious: Yes (Other)
  Sender: FDA-Public Use
  Company Number: US-ROCHE-1140500

PATIENT
  Sex: Male
  Weight: 37.5 kg

DRUGS (4)
  1. DDAVP [Concomitant]
     Active Substance: DESMOPRESSIN ACETATE
     Dosage: INTRANASAL
     Route: 065
  2. PROTROPIN [Suspect]
     Active Substance: SOMATREM
     Route: 058
  3. PROTROPIN [Suspect]
     Active Substance: SOMATREM
     Route: 058
  4. PROTROPIN [Suspect]
     Active Substance: SOMATREM
     Indication: HYPOTHALAMO-PITUITARY DISORDER
     Route: 058
     Dates: start: 198702

REACTIONS (3)
  - Metastases to bone [Unknown]
  - Metastases to skin [Unknown]
  - Metastases to liver [Unknown]
